FAERS Safety Report 17076679 (Version 3)
Quarter: 2020Q1

REPORT INFORMATION
  Report Type: Report from Study
  Country: GR (occurrence: GR)
  Receive Date: 20191126
  Receipt Date: 20200330
  Transmission Date: 20200409
  Serious: Yes (Hospitalization)
  Sender: FDA-Public Use
  Company Number: GR-ROCHE-2219284

PATIENT
  Age: 60 Year
  Sex: Male
  Weight: 82 kg

DRUGS (13)
  1. ZOVIRAX [Concomitant]
     Active Substance: ACYCLOVIR
     Indication: APHTHOUS ULCER
     Route: 065
     Dates: start: 20181118, end: 20181123
  2. FILICINE [Concomitant]
     Indication: ANAEMIA
     Route: 065
     Dates: start: 20190917
  3. BINOCRIT [Concomitant]
     Active Substance: ERYTHROPOIETIN
     Indication: ANAEMIA
     Route: 065
     Dates: start: 20191029, end: 20191029
  4. MAXIDEX [Concomitant]
     Active Substance: DEXAMETHASONE
     Indication: UVEITIS
     Route: 065
     Dates: start: 20181003
  5. ATEZOLIZUMAB. [Suspect]
     Active Substance: ATEZOLIZUMAB
     Indication: MALIGNANT MELANOMA
     Dosage: DATE OF MOST RECENT DOSE OF ATEZOLIZUMAB PRIOR TO ONSET OF FEVER (FIRST EPISODE) 01/NOV/2018.?DATE O
     Route: 042
     Dates: start: 20180125
  6. VEMURAFENIB. [Suspect]
     Active Substance: VEMURAFENIB
     Indication: MALIGNANT MELANOMA
     Dosage: DATE OF MOST RECENT DOSE OF VEMURAFENIB OF 8 TABLETS PRIOR TO ONSET OF FEVER (FIRST EPISODE):  12/NO
     Route: 048
     Dates: start: 20171221
  7. CALCIORAL D3 [Concomitant]
     Route: 065
     Dates: start: 20191122
  8. CYCLOGYL [Concomitant]
     Active Substance: CYCLOPENTOLATE HYDROCHLORIDE
     Indication: UVEITIS
     Route: 065
     Dates: start: 20181003
  9. COBIMETINIB. [Suspect]
     Active Substance: COBIMETINIB
     Indication: MALIGNANT MELANOMA
     Dosage: DATE OF MOST RECENT DOSE OF COBIMETINIB OF 60 MG PRIOR TO ONSET OF FEVER (FIRST EPISODE): 12/NOV/201
     Route: 048
     Dates: start: 20171221
  10. FUNGUSTATIN [Concomitant]
     Active Substance: FLUCONAZOLE
     Indication: APHTHOUS ULCER
     Route: 065
     Dates: start: 20181118, end: 20181123
  11. PREDNEAU [Concomitant]
     Indication: COLITIS
     Route: 048
     Dates: start: 20190909, end: 20191023
  12. PREDNEAU [Concomitant]
     Route: 048
     Dates: start: 20191119
  13. TARDYFERON [Concomitant]
     Active Substance: FERROUS SULFATE
     Indication: ANAEMIA
     Route: 065
     Dates: start: 20190917

REACTIONS (2)
  - Pyrexia [Recovered/Resolved]
  - Cholangitis [Recovered/Resolved]

NARRATIVE: CASE EVENT DATE: 20181113
